FAERS Safety Report 11769736 (Version 2)
Quarter: 2016Q1

REPORT INFORMATION
  Report Type: Report from Study
  Country: DE (occurrence: DE)
  Receive Date: 20151123
  Receipt Date: 20160104
  Transmission Date: 20160525
  Serious: Yes (Death, Other)
  Sender: FDA-Public Use
  Company Number: DE-ABBVIE-15P-062-1503979-00

PATIENT
  Sex: Male

DRUGS (1)
  1. DUODOPA [Suspect]
     Active Substance: CARBIDOPA\LEVODOPA
     Indication: PARKINSON^S DISEASE
     Dosage: MD 12.0ML, CRD 3.8ML/H, ED 2.0ML
     Route: 050
     Dates: start: 20130603, end: 20151105

REACTIONS (3)
  - Condition aggravated [Unknown]
  - General physical health deterioration [Fatal]
  - Pyrexia [Unknown]
